FAERS Safety Report 24884290 (Version 1)
Quarter: 2025Q1

REPORT INFORMATION
  Report Type: Spontaneous
  Country: DE (occurrence: DE)
  Receive Date: 20250124
  Receipt Date: 20250124
  Transmission Date: 20250408
  Serious: Yes (Other)
  Sender: INCYTE
  Company Number: DE-002147023-NVSC2025DE009300

PATIENT

DRUGS (1)
  1. RUXOLITINIB [Suspect]
     Active Substance: RUXOLITINIB
     Indication: Chronic graft versus host disease
     Route: 065

REACTIONS (4)
  - Indolent systemic mastocytosis [Unknown]
  - Polyomavirus-associated nephropathy [Unknown]
  - Human polyomavirus infection [Unknown]
  - Chronic graft versus host disease [Unknown]
